FAERS Safety Report 11139879 (Version 1)
Quarter: 2015Q2

REPORT INFORMATION
  Report Type: Spontaneous
  Country: US (occurrence: US)
  Receive Date: 20150527
  Receipt Date: 20150527
  Transmission Date: 20150821
  Serious: No
  Sender: FDA-Public Use
  Company Number: US-PFIZER INC-2015165341

PATIENT
  Sex: Female

DRUGS (1)
  1. LIPITOR [Suspect]
     Active Substance: ATORVASTATIN CALCIUM
     Dosage: UNK

REACTIONS (8)
  - Drug withdrawal syndrome [Unknown]
  - Neuropathy peripheral [Unknown]
  - Palpitations [Unknown]
  - Balance disorder [Unknown]
  - Amnesia [Unknown]
  - Muscle spasms [Unknown]
  - Feeling abnormal [Unknown]
  - Dizziness [Unknown]
